FAERS Safety Report 9028496 (Version 4)
Quarter: 2014Q2

REPORT INFORMATION
  Report Type: Report from Study
  Country: CA (occurrence: CA)
  Receive Date: 20130124
  Receipt Date: 20140606
  Transmission Date: 20141212
  Serious: Yes (Other)
  Sender: FDA-Public Use
  Company Number: CA-ROCHE-1064600

PATIENT
  Age: 60 Year
  Sex: Female

DRUGS (5)
  1. ZELBORAF [Suspect]
     Indication: METASTATIC MALIGNANT MELANOMA
     Dosage: 3 TABLETS TWICE A DAY
     Route: 048
     Dates: start: 20120412, end: 201405
  2. ZELBORAF [Suspect]
     Route: 048
     Dates: start: 20121218
  3. MELATONIN [Concomitant]
  4. NAPROXEN [Concomitant]
     Route: 065
  5. KEPPRA [Concomitant]

REACTIONS (11)
  - Electrocardiogram abnormal [Unknown]
  - Brain neoplasm [Unknown]
  - Malignant melanoma [Recovered/Resolved]
  - Diabetes mellitus [Not Recovered/Not Resolved]
  - Oropharyngeal pain [Recovering/Resolving]
  - Rhinorrhoea [Recovered/Resolved]
  - Cough [Recovering/Resolving]
  - Sleep disorder [Unknown]
  - Gingival inflammation [Unknown]
  - Malignant neoplasm progression [Not Recovered/Not Resolved]
  - Drug ineffective [Unknown]
